FAERS Safety Report 17690151 (Version 1)
Quarter: 2020Q2

REPORT INFORMATION
  Report Type: Spontaneous
  Country: US (occurrence: US)
  Receive Date: 20200421
  Receipt Date: 20200421
  Transmission Date: 20200714
  Serious: Yes (Death, Life-Threatening, Hospitalization, Other)
  Sender: FDA-Public Use
  Company Number: US-EPIC PHARMA LLC-2020EPC00108

PATIENT
  Age: 57 Year
  Sex: Male
  Weight: 68.03 kg

DRUGS (5)
  1. OXYMORPHONE [Suspect]
     Active Substance: OXYMORPHONE
     Indication: PAIN
     Dosage: UNK INITIAL DOSE
     Route: 048
     Dates: start: 1996
  2. ALCOHOL. [Suspect]
     Active Substance: ALCOHOL
     Dosage: UNK
  3. OXYMORPHONE [Suspect]
     Active Substance: OXYMORPHONE
     Dosage: UNK RESTART DOSE
     Route: 048
  4. OXYMORPHONE [Suspect]
     Active Substance: OXYMORPHONE
     Dosage: 80 MG, 3X/DAY
     Route: 048
  5. OXYCODONE [Suspect]
     Active Substance: OXYCODONE
     Dosage: UNK

REACTIONS (11)
  - Pain [Unknown]
  - Physical assault [Unknown]
  - Unevaluable event [Unknown]
  - Injury [Unknown]
  - Overdose [Fatal]
  - Dependence [Not Recovered/Not Resolved]
  - Road traffic accident [Unknown]
  - Drug abuse [Not Recovered/Not Resolved]
  - Drug ineffective [Unknown]
  - Suicide attempt [Unknown]
  - Aggression [Unknown]

NARRATIVE: CASE EVENT DATE: 201401
